FAERS Safety Report 9379252 (Version 3)
Quarter: 2015Q2

REPORT INFORMATION
  Report Type: Spontaneous
  Country: US (occurrence: US)
  Receive Date: 20130702
  Receipt Date: 20150524
  Transmission Date: 20150821
  Serious: Yes (Death, Other)
  Sender: FDA-Public Use
  Company Number: US-JNJFOC-20130612747

PATIENT

DRUGS (2)
  1. CYCLOPHOSPHAMIDE. [Suspect]
     Active Substance: CYCLOPHOSPHAMIDE
     Indication: BREAST CANCER
     Route: 065
  2. DOXORUBICIN [Suspect]
     Active Substance: DOXORUBICIN
     Indication: BREAST CANCER
     Route: 042

REACTIONS (7)
  - Acute myeloid leukaemia [Unknown]
  - Cytogenetic abnormality [Unknown]
  - Myelodysplastic syndrome [Fatal]
  - Myelodysplastic syndrome [Unknown]
  - Refractory anaemia with an excess of blasts [Unknown]
  - Acute myeloid leukaemia [Fatal]
  - Refractory cytopenia with unilineage dysplasia [Unknown]
